FAERS Safety Report 17291163 (Version 1)
Quarter: 2020Q1

REPORT INFORMATION
  Report Type: Report from Study
  Country: DE (occurrence: AT)
  Receive Date: 20200121
  Receipt Date: 20200121
  Transmission Date: 20200409
  Serious: Yes (Other)
  Sender: FDA-Public Use
  Company Number: DE-BAYER-2020-003223

PATIENT
  Age: 24 Year
  Sex: Female

DRUGS (1)
  1. JAYDESS [Suspect]
     Active Substance: LEVONORGESTREL
     Dosage: UNK
     Route: 015
     Dates: start: 201906, end: 20191211

REACTIONS (2)
  - Device dislocation [Recovered/Resolved]
  - Cervix carcinoma stage 0 [Not Recovered/Not Resolved]
